FAERS Safety Report 19388030 (Version 1)
Quarter: 2021Q2

REPORT INFORMATION
  Report Type: Spontaneous
  Country: US (occurrence: US)
  Receive Date: 20210607
  Receipt Date: 20210607
  Transmission Date: 20210717
  Serious: Yes (Other)
  Sender: FDA-Public Use
  Company Number: None

PATIENT
  Sex: Female
  Weight: 89.1 kg

DRUGS (16)
  1. LISINOPRIL 10 MG TAB [Concomitant]
     Active Substance: LISINOPRIL
  2. PEPCID AC [Concomitant]
     Active Substance: FAMOTIDINE
  3. AMOXICILLIN 500 MG CAP [Concomitant]
  4. GABAPENTIN 300 MG CAP [Concomitant]
     Active Substance: GABAPENTIN
  5. MIRALAX [Concomitant]
     Active Substance: POLYETHYLENE GLYCOL 3350
  6. ASPIRIN 81 MG TAB [Concomitant]
  7. DULCOLAX 5 MG TAB [Concomitant]
  8. FUROSEMIDE 20 MG TAB [Concomitant]
  9. VENLAFAXINE 75 MG TAB [Concomitant]
  10. MYSOLINE 50 MG [Concomitant]
  11. ATENOLOL 50 MG TAB [Concomitant]
  12. FLOANSE NS [Concomitant]
  13. CAPECITABINE 500 MG TAB [Suspect]
     Active Substance: CAPECITABINE
     Indication: BREAST CANCER
     Route: 048
  14. REQUIP 1 MG TAB [Concomitant]
  15. TRAMADOL 50 MG TAB [Concomitant]
  16. XALATAN [Concomitant]
     Active Substance: LATANOPROST

REACTIONS (1)
  - Disease progression [None]
